FAERS Safety Report 7692184-7 (Version None)
Quarter: 2011Q3

REPORT INFORMATION
  Report Type: 
  Country: None (occurrence: None)
  Receive Date: 20110818
  Receipt Date: 20110809
  Transmission Date: 20111222
  Serious: Yes (Hospitalization, Other)
  Sender: FDA-Public Use
  Company Number: PHHY2011JP45811

PATIENT
  Age: 1 Year
  Sex: Male

DRUGS (4)
  1. NEORAL [Suspect]
     Indication: APLASTIC ANAEMIA
     Dosage: 4 TO 12 MG/KG/DAY
     Dates: start: 20060705
  2. NEORAL [Suspect]
     Dosage: 80 MG, UNK
  3. METHYLPREDNISOLONE [Concomitant]
     Dosage: 25 MG PER DAY
     Dates: start: 20060318
  4. PREDNISOLONE [Concomitant]
     Dosage: 2 MG PER DAY
     Dates: start: 20060318

REACTIONS (8)
  - THROMBOCYTOPENIA [None]
  - PYREXIA [None]
  - APLASTIC ANAEMIA [None]
  - HYPERPLASIA [None]
  - MEGAKARYOCYTES INCREASED [None]
  - DRUG INEFFECTIVE [None]
  - NEUTROPHIL COUNT DECREASED [None]
  - INFLAMMATORY BOWEL DISEASE [None]
